FAERS Safety Report 7439749-5 (Version None)
Quarter: 2011Q2

REPORT INFORMATION
  Report Type: 
  Country: None (occurrence: None)
  Receive Date: 20110427
  Receipt Date: 20110419
  Transmission Date: 20111010
  Serious: Yes (Other)
  Sender: FDA-Public Use
  Company Number: PHHY2011US07284

PATIENT
  Sex: Female

DRUGS (10)
  1. GILENYA [Suspect]
     Dosage: 0.5 MG, DAILY
     Route: 048
  2. FAMPRIDINE [Concomitant]
     Dosage: UNK
  3. GILENYA [Suspect]
     Indication: MULTIPLE SCLEROSIS
     Dosage: 0.5 MG, DAILY
     Route: 048
     Dates: start: 20110104
  4. VITAMIN D [Concomitant]
     Dosage: UNK
  5. LECITHIN [Concomitant]
     Dosage: UNK
  6. MACROBID [Concomitant]
     Dosage: UNK
  7. LOVAZA [Concomitant]
     Dosage: UNK
  8. COQ10 [Concomitant]
     Dosage: UNK
  9. BACLOFEN [Concomitant]
     Dosage: UNK
  10. COLOSTRUM [Concomitant]
     Dosage: UNK

REACTIONS (2)
  - VULVOVAGINAL DISCOMFORT [None]
  - VAGINAL INFECTION [None]
